FAERS Safety Report 8035604-0 (Version None)
Quarter: 2012Q1

REPORT INFORMATION
  Report Type: 
  Country: None (occurrence: None)
  Receive Date: 20120110
  Receipt Date: 20120110
  Transmission Date: 20120608
  Serious: Yes (Hospitalization)
  Sender: FDA-Public Use
  Company Number: None

PATIENT
  Sex: Male
  Weight: 63.5 kg

DRUGS (13)
  1. DILAUDID [Concomitant]
  2. VIMPAT [Concomitant]
  3. FLOMAX [Concomitant]
  4. ZOFRAN [Concomitant]
  5. PEPCID [Concomitant]
  6. BORTEZOMIB [Suspect]
     Indication: RENAL CELL CARCINOMA
     Dosage: 1.8 MG D1 + D8 IV
     Route: 042
     Dates: start: 20100608, end: 20111123
  7. MS CONTIN [Concomitant]
  8. PRIMIDONE [Concomitant]
  9. CALCIUM [Concomitant]
  10. BEVACIZUMAB [Suspect]
     Indication: RENAL CELL CARCINOMA
     Dosage: 15 MG Q 21 DAYS IV
     Route: 042
     Dates: start: 20100608, end: 20111123
  11. ZONEGRAN [Concomitant]
  12. BISACODYL [Concomitant]
  13. COLACE [Concomitant]

REACTIONS (4)
  - CELLULITIS [None]
  - PNEUMONIA [None]
  - PAIN IN EXTREMITY [None]
  - REFUSAL OF TREATMENT BY PATIENT [None]
